FAERS Safety Report 11425323 (Version 1)
Quarter: 2015Q3

REPORT INFORMATION
  Report Type: Spontaneous
  Country: US (occurrence: US)
  Receive Date: 20150821
  Receipt Date: 20150821
  Transmission Date: 20151125
  Serious: No
  Sender: FDA-Public Use
  Company Number: US-ELI_LILLY_AND_COMPANY-US201301009443

PATIENT
  Age: 70 Year
  Sex: Male
  Weight: 84.35 kg

DRUGS (1)
  1. CIALIS [Suspect]
     Active Substance: TADALAFIL
     Indication: ERECTILE DYSFUNCTION
     Dosage: 1 DF, UNKNOWN
     Dates: start: 2010, end: 2012

REACTIONS (1)
  - Coeliac disease [Unknown]
